FAERS Safety Report 20793610 (Version 1)
Quarter: 2022Q2

REPORT INFORMATION
  Report Type: Spontaneous
  Country: US (occurrence: US)
  Receive Date: 20220506
  Receipt Date: 20220506
  Transmission Date: 20220720
  Serious: Yes (Other)
  Sender: FDA-Public Use
  Company Number: US-CADILA HEALTHCARE LIMITED-US-ZYDUS-077559

PATIENT

DRUGS (13)
  1. ACETAZOLAMIDE [Suspect]
     Active Substance: ACETAZOLAMIDE
     Indication: Breath holding
     Dosage: UNK
     Route: 065
  2. ZONISAMIDE [Suspect]
     Active Substance: ZONISAMIDE
     Indication: Epileptic encephalopathy
     Dosage: UNK
     Route: 065
  3. CLOBAZAM [Suspect]
     Active Substance: CLOBAZAM
     Indication: Epileptic encephalopathy
     Dosage: UNK
     Route: 065
  4. TOPIRAMATE [Suspect]
     Active Substance: TOPIRAMATE
     Indication: Epileptic encephalopathy
     Dosage: UNK
     Route: 065
  5. VALPROIC ACID [Suspect]
     Active Substance: VALPROIC ACID
     Indication: Epileptic encephalopathy
     Dosage: UNK
     Route: 065
  6. DESIPRAMINE [Concomitant]
     Active Substance: DESIPRAMINE
     Indication: Breath holding
     Dosage: UNK
     Route: 065
  7. RUFINAMIDE [Concomitant]
     Active Substance: RUFINAMIDE
     Indication: Epileptic encephalopathy
     Dosage: UNK
     Route: 065
  8. RUFINAMIDE [Concomitant]
     Active Substance: RUFINAMIDE
     Indication: Blood iron
  9. CANNABIDIOL [Concomitant]
     Active Substance: CANNABIDIOL
     Indication: Epileptic encephalopathy
     Dosage: UNK
     Route: 065
  10. CANNABIDIOL [Concomitant]
     Active Substance: CANNABIDIOL
     Indication: Blood iron
  11. CLONAZEPAM [Concomitant]
     Active Substance: CLONAZEPAM
     Indication: Epileptic encephalopathy
     Dosage: UNK
     Route: 065
  12. CLONAZEPAM [Concomitant]
     Active Substance: CLONAZEPAM
     Indication: Blood iron
  13. LACOSAMIDE [Concomitant]
     Active Substance: LACOSAMIDE
     Indication: Epileptic encephalopathy
     Dosage: UNK
     Route: 065

REACTIONS (6)
  - Hyperammonaemia [Unknown]
  - Decreased appetite [Unknown]
  - Weight decreased [Unknown]
  - Encephalopathy [Unknown]
  - Lethargy [Unknown]
  - Drug ineffective [Unknown]
